FAERS Safety Report 9859221 (Version 3)
Quarter: 2014Q1

REPORT INFORMATION
  Report Type: Spontaneous
  Country: FR (occurrence: FR)
  Receive Date: 20140131
  Receipt Date: 20140212
  Transmission Date: 20141002
  Serious: Yes (Hospitalization, Other)
  Sender: FDA-Public Use
  Company Number: FR-ACTELION-A-CH2013-91263

PATIENT
  Age: 66 Year
  Sex: Male

DRUGS (13)
  1. TRACLEER [Suspect]
     Indication: SKIN ULCER
     Dosage: 125 MG, BID
     Route: 048
     Dates: start: 20130614, end: 20130818
  2. TRACLEER [Suspect]
     Dosage: 62.5 MG, BID
     Route: 048
     Dates: start: 20130522, end: 20130613
  3. CALCIDOSE VITAMINE D [Concomitant]
     Dosage: UNK
     Dates: start: 20130514
  4. CRESTOR [Concomitant]
     Dosage: 5 MG, QD
     Dates: start: 20130514
  5. KARDEGIC [Concomitant]
     Dosage: 75 MG, QD
     Dates: start: 20130514
  6. AMLODIPINE [Concomitant]
     Dosage: 75 MG, QD
     Dates: start: 20131014
  7. PLAVIX [Concomitant]
     Dosage: 75 MG, UNK
  8. PROCORALAN [Concomitant]
     Dosage: 5 MG, BID
  9. SYMBICORT [Concomitant]
  10. DOLIPRANE [Concomitant]
     Dosage: 1000 MG, PRN
  11. TRANSIPEG [Concomitant]
     Dosage: 5.9 G, PRN
  12. INEXIUM [Concomitant]
     Indication: GASTRIC ULCER
  13. MONOTILDIEM [Concomitant]
     Dosage: 200 MG, UNK

REACTIONS (9)
  - Hepatitis [Recovered/Resolved]
  - Aspartate aminotransferase increased [Recovered/Resolved]
  - Alanine aminotransferase increased [Recovered/Resolved]
  - Acute abdomen [Recovered/Resolved]
  - Abdominal pain [Recovered/Resolved]
  - Abdominal pain upper [Recovered/Resolved]
  - Lipase increased [Recovered/Resolved]
  - Headache [Unknown]
  - Raynaud^s phenomenon [Unknown]
